FAERS Safety Report 8321873-6 (Version None)
Quarter: 2012Q2

REPORT INFORMATION
  Report Type: 
  Country: None (occurrence: None)
  Receive Date: 20120430
  Receipt Date: 20120424
  Transmission Date: 20120825
  Serious: Yes (Hospitalization)
  Sender: FDA-Public Use
  Company Number: FR-GLAXOSMITHKLINE-B0797719A

PATIENT
  Sex: Male

DRUGS (10)
  1. MEBEVERINE [Suspect]
     Indication: POISONING DELIBERATE
     Route: 048
     Dates: start: 20120215, end: 20120215
  2. ACETYLCYSTEINE [Suspect]
     Indication: POISONING DELIBERATE
     Route: 048
     Dates: start: 20120215, end: 20120215
  3. TEGRETOL [Suspect]
     Indication: POISONING DELIBERATE
     Route: 048
     Dates: start: 20120215, end: 20120215
  4. URBANYL [Suspect]
     Indication: POISONING DELIBERATE
     Route: 048
     Dates: start: 20120215, end: 20120215
  5. LAMICTAL [Suspect]
     Indication: POISONING DELIBERATE
     Route: 048
     Dates: start: 20120215, end: 20120215
  6. SPASFON [Suspect]
     Indication: POISONING DELIBERATE
     Route: 048
     Dates: start: 20120215, end: 20120215
  7. IBUPROFEN [Suspect]
     Indication: POISONING DELIBERATE
     Route: 048
     Dates: start: 20120215, end: 20120215
  8. ACETAMINOPHEN [Suspect]
     Indication: POISONING DELIBERATE
     Route: 048
     Dates: start: 20120215, end: 20120215
  9. MAXILASE [Suspect]
     Indication: POISONING DELIBERATE
     Route: 048
     Dates: start: 20120215, end: 20120215
  10. ASPIRIN [Suspect]
     Indication: POISONING DELIBERATE
     Route: 048
     Dates: start: 20120215, end: 20120215

REACTIONS (6)
  - VOMITING [None]
  - DEPRESSED LEVEL OF CONSCIOUSNESS [None]
  - CONFUSIONAL STATE [None]
  - ELECTROCARDIOGRAM QRS COMPLEX PROLONGED [None]
  - AGITATION [None]
  - POISONING DELIBERATE [None]
